FAERS Safety Report 5757894-7 (Version None)
Quarter: 2008Q2

REPORT INFORMATION
  Report Type: 
  Country: None (occurrence: None)
  Receive Date: 20080602
  Receipt Date: 20080602
  Transmission Date: 20081010
  Serious: No
  Sender: FDA-Public Use
  Company Number: None

PATIENT
  Age: 47 Year
  Sex: Female

DRUGS (4)
  1. CLONAZEPAM [Suspect]
     Dosage: 2MG BEDTIME
     Dates: start: 20071001
  2. VALIUM [Concomitant]
  3. FLEXERIL [Concomitant]
  4. NEURONTIN [Concomitant]

REACTIONS (3)
  - BACK PAIN [None]
  - FEELING ABNORMAL [None]
  - MYALGIA [None]
